FAERS Safety Report 20293767 (Version 1)
Quarter: 2022Q1

REPORT INFORMATION
  Report Type: Report from Study
  Country: US (occurrence: US)
  Receive Date: 20220104
  Receipt Date: 20220104
  Transmission Date: 20220423
  Serious: Yes (Hospitalization)
  Sender: FDA-Public Use
  Company Number: US-TAKEDA-US201702237

PATIENT
  Age: 79 Year
  Sex: Male
  Weight: 86.3 kg

DRUGS (12)
  1. TEDUGLUTIDE [Suspect]
     Active Substance: TEDUGLUTIDE
     Indication: Short-bowel syndrome
     Dosage: UNK, UNKNOWN; NEVER EXPOSED TO TEDUGLUTIDE
     Route: 058
  2. TEDUGLUTIDE [Suspect]
     Active Substance: TEDUGLUTIDE
     Indication: Short-bowel syndrome
     Dosage: UNK, UNKNOWN; NEVER EXPOSED TO TEDUGLUTIDE
     Route: 058
  3. TEDUGLUTIDE [Suspect]
     Active Substance: TEDUGLUTIDE
     Indication: Short-bowel syndrome
     Dosage: UNK, UNKNOWN; NEVER EXPOSED TO TEDUGLUTIDE
     Route: 058
  4. TEDUGLUTIDE [Suspect]
     Active Substance: TEDUGLUTIDE
     Indication: Short-bowel syndrome
     Dosage: UNK, UNKNOWN; NEVER EXPOSED TO TEDUGLUTIDE
     Route: 058
  5. AMIODARONE [Concomitant]
     Active Substance: AMIODARONE
     Indication: Ventricular tachycardia
     Dosage: 200.0 MG, UNKNOWN
     Route: 048
     Dates: start: 20161206
  6. IRON [Concomitant]
     Active Substance: IRON
     Indication: Iron deficiency
     Dosage: 65 MG, 1X/DAY:QD
     Route: 048
     Dates: start: 201511
  7. LOSARTAN [Concomitant]
     Active Substance: LOSARTAN
     Indication: Hypertension
     Dosage: 25.0 MG, 2X/DAY:BID
     Route: 048
     Dates: start: 201508
  8. PROMETHAZINE [Concomitant]
     Active Substance: PROMETHAZINE HYDROCHLORIDE
     Indication: Nausea
     Dosage: 25.0 MG, AS REQ^D (PRN)
     Route: 048
     Dates: start: 2012
  9. DICLOFENAC SODIUM [Concomitant]
     Active Substance: DICLOFENAC SODIUM
     Indication: Osteoarthritis
     Dosage: 0.4 MILLIGRAM
     Route: 048
     Dates: start: 20190228
  10. ROBITUSSIN (GUAIFENESIN) [Concomitant]
     Active Substance: GUAIFENESIN
     Indication: Nasopharyngitis
     Dosage: 10 MILLILITER
     Route: 048
     Dates: start: 20191218, end: 20191228
  11. BENZONATATE [Concomitant]
     Active Substance: BENZONATATE
     Indication: Upper respiratory tract infection
     Dosage: 200 MILLIGRAM, TID
     Route: 048
     Dates: start: 20190203, end: 20190213
  12. VOLTAREN [Concomitant]
     Active Substance: DICLOFENAC SODIUM
     Indication: Osteoarthritis
     Dosage: 75 MILLIGRAM, BID
     Route: 048
     Dates: start: 20191204

REACTIONS (3)
  - Herpes zoster [Recovered/Resolved]
  - Abdominal pain [Recovered/Resolved]
  - Malaise [Unknown]

NARRATIVE: CASE EVENT DATE: 20170127
